FAERS Safety Report 25886183 (Version 1)
Quarter: 2025Q4

REPORT INFORMATION
  Report Type: Spontaneous
  Country: EU (occurrence: EU)
  Receive Date: 20251006
  Receipt Date: 20251006
  Transmission Date: 20260117
  Serious: Yes (Hospitalization)
  Sender: SANDOZ
  Company Number: EU-ABBVIE-6467560

PATIENT
  Age: 75 Year
  Sex: Male

DRUGS (1)
  1. ADALIMUMAB [Suspect]
     Active Substance: ADALIMUMAB
     Indication: Dermatitis atopic
     Dosage: UNK
     Route: 058
     Dates: start: 20241212, end: 20250210

REACTIONS (7)
  - Hospitalisation [Recovered/Resolved]
  - Skin exfoliation [Unknown]
  - Pustule [Unknown]
  - Dermatitis atopic [Unknown]
  - Pityriasis [Unknown]
  - Rash erythematous [Unknown]
  - Drug ineffective [Unknown]

NARRATIVE: CASE EVENT DATE: 20250114
